FAERS Safety Report 5870302-0 (Version None)
Quarter: 2008Q3

REPORT INFORMATION
  Report Type: 
  Country: None (occurrence: None)
  Receive Date: 20080904
  Receipt Date: 20070829
  Transmission Date: 20090109
  Serious: No
  Sender: FDA-Public Use
  Company Number: US-BRISTOL-MYERS SQUIBB COMPANY-13892609

PATIENT
  Sex: Male
  Weight: 95 kg

DRUGS (13)
  1. DEFINITY [Suspect]
  2. ADVAIR DISKUS 100/50 [Concomitant]
  3. CHANTIX [Concomitant]
  4. PRILOSEC [Concomitant]
  5. CALTRATE [Concomitant]
  6. VITAMIN D3 [Concomitant]
  7. NASONEX [Concomitant]
  8. COMBIVENT [Concomitant]
  9. ALBUTEROL [Concomitant]
  10. ZYRTEC [Concomitant]
  11. AVAPRO [Concomitant]
  12. THEOPHYLLINE [Concomitant]
  13. ASPIRIN [Concomitant]

REACTIONS (1)
  - RASH [None]
